FAERS Safety Report 7638505-2 (Version None)
Quarter: 2011Q3

REPORT INFORMATION
  Report Type: 
  Country: None (occurrence: None)
  Receive Date: 20110727
  Receipt Date: 20110714
  Transmission Date: 20111222
  Serious: Yes (Hospitalization, Other)
  Sender: FDA-Public Use
  Company Number: PHHY2011AU63207

PATIENT
  Sex: Female

DRUGS (2)
  1. ZOMETA [Suspect]
     Dosage: UNK
     Dates: start: 20100501
  2. FEMARA [Suspect]
     Dosage: UNK
     Dates: start: 20101001

REACTIONS (6)
  - LOSS OF CONSCIOUSNESS [None]
  - RED BLOOD CELL SEDIMENTATION RATE ABNORMAL [None]
  - SYSTEMIC LUPUS ERYTHEMATOSUS [None]
  - BONE DISORDER [None]
  - VITAMIN D DECREASED [None]
  - BLOOD PARATHYROID HORMONE INCREASED [None]
